FAERS Safety Report 24423656 (Version 1)
Quarter: 2024Q4

REPORT INFORMATION
  Report Type: Spontaneous
  Country: US (occurrence: US)
  Receive Date: 20241010
  Receipt Date: 20241010
  Transmission Date: 20250115
  Serious: Yes (Hospitalization, Other)
  Sender: FRESENIUS KABI
  Company Number: US-FreseniusKabi-FK202414784

PATIENT
  Age: 65 Year
  Sex: Male

DRUGS (8)
  1. FENTANYL [Suspect]
     Active Substance: FENTANYL
     Indication: Muscle spasticity
     Dosage: 911 MCG, QD?THE PATIENT WAS RECEIVING 911 MCG/DAY OF FENTANYL AND AVERAGED 976 MCG/DAY WITH BOLUSES
     Route: 037
  2. FENTANYL [Suspect]
     Active Substance: FENTANYL
     Indication: Spinal cord injury
  3. BUPIVACAINE [Suspect]
     Active Substance: BUPIVACAINE
     Indication: Spinal cord injury
     Dosage: UNK?THERAPY ONGOING
     Route: 037
  4. BUPIVACAINE [Suspect]
     Active Substance: BUPIVACAINE
     Indication: Muscle spasticity
  5. ZICONOTIDE ACETATE [Suspect]
     Active Substance: ZICONOTIDE ACETATE
     Indication: Spinal cord injury
     Dosage: INTRATHECAL INFUSION?100 ?G/ML?DAILY DOSE: CONCENTRATION 10.5 MCG/ML ?THERAPY ONGOING
     Route: 037
  6. ZICONOTIDE ACETATE [Suspect]
     Active Substance: ZICONOTIDE ACETATE
     Indication: Muscle spasticity
  7. BACLOFEN [Suspect]
     Active Substance: BACLOFEN
     Indication: Muscle spasticity
     Dosage: UNK?THERAPY ONGOING
     Route: 037
  8. BACLOFEN [Suspect]
     Active Substance: BACLOFEN
     Indication: Spinal cord injury

REACTIONS (3)
  - Respiratory distress [Recovering/Resolving]
  - Mental status changes [Recovering/Resolving]
  - Off label use [Unknown]

NARRATIVE: CASE EVENT DATE: 20240920
